FAERS Safety Report 10162329 (Version 3)
Quarter: 2014Q2

REPORT INFORMATION
  Report Type: Spontaneous
  Country: AR (occurrence: AR)
  Receive Date: 20140509
  Receipt Date: 20140610
  Transmission Date: 20141212
  Serious: Yes (Hospitalization)
  Sender: FDA-Public Use
  Company Number: AR-NOVOPROD-396527

PATIENT
  Age: 40 Year
  Sex: Female
  Weight: 65 kg

DRUGS (8)
  1. NOVORAPID FLEXPEN [Suspect]
     Indication: TYPE 1 DIABETES MELLITUS
     Dosage: 10-16 IU(ACCORDING TO GLYCAEMIA LEVELS)
     Route: 058
     Dates: start: 201301
  2. INSULATARD FLEXPEN [Suspect]
     Indication: TYPE 1 DIABETES MELLITUS
     Dosage: 42 IU, QD
     Route: 058
     Dates: start: 201307
  3. LEVOTHYROXINE SODIUM [Concomitant]
     Dosage: 150 UG, QD
     Route: 048
     Dates: start: 1993
  4. FOLIC ACID [Concomitant]
     Dosage: 0.5 MG, QD
     Route: 048
     Dates: start: 2011
  5. FOLIC ACID [Concomitant]
     Dosage: 5 MG, QD
     Route: 048
     Dates: start: 201307
  6. IRON POLYMALTOSE [Concomitant]
     Dosage: 100 MG, QD
     Route: 048
     Dates: start: 2011
  7. CYANOCOBALAMIN [Concomitant]
     Dosage: 0.2 MG, QD
     Route: 048
     Dates: start: 2011
  8. CORTICOID [Concomitant]
     Indication: MATERNAL THERAPY TO ENHANCE FOETAL LUNG MATURITY
     Dosage: 2 INJECTIONS
     Route: 065

REACTIONS (5)
  - Hypertension [Unknown]
  - Oedema peripheral [Unknown]
  - Hyperglycaemia [Unknown]
  - Diabetes mellitus inadequate control [Recovered/Resolved]
  - Exposure during pregnancy [Recovered/Resolved]
